FAERS Safety Report 18990845 (Version 1)
Quarter: 2021Q1

REPORT INFORMATION
  Report Type: Spontaneous
  Country: PK (occurrence: PK)
  Receive Date: 20210310
  Receipt Date: 20210310
  Transmission Date: 20210420
  Serious: Yes (Other)
  Sender: FDA-Public Use
  Company Number: PK-APOTEX-2021AP005693

PATIENT
  Age: 35 Year
  Sex: Male

DRUGS (1)
  1. SEROXAT CR MODIFIED RELEASE TABLET [Suspect]
     Active Substance: PAROXETINE HYDROCHLORIDE
     Indication: ANXIETY DISORDER
     Dosage: 25 MG, QD ONCE DAILY
     Route: 048
     Dates: start: 20200812

REACTIONS (1)
  - Lower respiratory tract infection [Unknown]

NARRATIVE: CASE EVENT DATE: 20201222
